FAERS Safety Report 8961252 (Version 1)
Quarter: 2012Q4

REPORT INFORMATION
  Report Type: 
  Country: TR (occurrence: TR)
  Receive Date: 20121212
  Receipt Date: 20121212
  Transmission Date: 20130627
  Serious: Yes (Hospitalization)
  Sender: FDA-Public Use
  Company Number: TR-ROXANE LABORATORIES, INC.-2012-RO-02550RO

PATIENT
  Age: 81 Year
  Sex: Female

DRUGS (4)
  1. RAMIPRIL [Suspect]
  2. CLOPIDOGREL [Suspect]
     Indication: CORONARY ARTERY BYPASS
     Dosage: 75 mg
  3. PANTOPRAZOLE [Suspect]
  4. CARVEDILOL [Suspect]

REACTIONS (2)
  - Spontaneous haematoma [Recovered/Resolved]
  - Epigastric discomfort [Unknown]
